FAERS Safety Report 8533054 (Version 2)
Quarter: 2014Q2

REPORT INFORMATION
  Report Type: Report from Study
  Country: IN (occurrence: IN)
  Receive Date: 20120427
  Receipt Date: 20140416
  Transmission Date: 20141212
  Serious: Yes (Other)
  Sender: FDA-Public Use
  Company Number: PHHY2012IN035184

PATIENT
  Sex: Female

DRUGS (1)
  1. GLIVEC [Suspect]
     Indication: CHRONIC MYELOID LEUKAEMIA
     Dosage: 400 MG, UNK

REACTIONS (3)
  - Fall [Unknown]
  - Wrist fracture [Unknown]
  - Eye haemorrhage [Unknown]
